FAERS Safety Report 8256080 (Version 2)
Quarter: 2012Q4

REPORT INFORMATION
  Report Type: 
  Country: IR (occurrence: IR)
  Receive Date: 20111121
  Receipt Date: 20121218
  Transmission Date: 20130627
  Serious: Yes (Death, Hospitalization, Other)
  Sender: FDA-Public Use
  Company Number: IR-RANBAXY-2011RR-50313

PATIENT
  Age: 21 Year
  Sex: Female

DRUGS (1)
  1. METFORMIN [Suspect]
     Dosage: 100 g
     Route: 048

REACTIONS (10)
  - Toxicity to various agents [Fatal]
  - Intentional overdose [Fatal]
  - Nausea [Fatal]
  - Vomiting [Fatal]
  - Hypoglycaemia [Fatal]
  - Metabolic acidosis [Fatal]
  - Bradyarrhythmia [Fatal]
  - Hypovolaemic shock [Fatal]
  - Convulsion [Fatal]
  - Loss of consciousness [Fatal]
